FAERS Safety Report 8524282-X (Version None)
Quarter: 2012Q3

REPORT INFORMATION
  Report Type: 
  Country: None (occurrence: None)
  Receive Date: 20120720
  Receipt Date: 20120712
  Transmission Date: 20120928
  Serious: Yes (Hospitalization, Other)
  Sender: FDA-Public Use
  Company Number: US-ABBOTT-12P-163-0956578-00

PATIENT
  Sex: Female
  Weight: 81.72 kg

DRUGS (3)
  1. NORCO [Concomitant]
     Indication: PRODUCT USED FOR UNKNOWN INDICATION
  2. TRAMADOL HYDROCHLORIDE [Concomitant]
     Indication: PRODUCT USED FOR UNKNOWN INDICATION
  3. HUMIRA [Suspect]
     Indication: CROHN'S DISEASE
     Dates: start: 20120327

REACTIONS (4)
  - HAEMORRHOIDAL HAEMORRHAGE [None]
  - ANAEMIA [None]
  - ARTHRALGIA [None]
  - RECTAL HAEMORRHAGE [None]
